FAERS Safety Report 7543589-6 (Version None)
Quarter: 2011Q2

REPORT INFORMATION
  Report Type: 
  Country: None (occurrence: None)
  Receive Date: 20110613
  Receipt Date: 20021008
  Transmission Date: 20111010
  Serious: Yes (Life-Threatening, Hospitalization)
  Sender: FDA-Public Use
  Company Number: PHBS2002CA08934

PATIENT
  Sex: Male
  Weight: 144 kg

DRUGS (18)
  1. NICOTINE [Concomitant]
     Route: 065
     Dates: start: 20020723
  2. ATIVAN [Concomitant]
     Indication: AGITATION
     Dosage: 2 MG, QD
     Route: 065
     Dates: start: 20020722
  3. HALOPERIDOL [Concomitant]
     Dosage: 5 MG, QD
     Route: 065
     Dates: start: 20020722, end: 20020723
  4. CLINDAMYCIN [Concomitant]
     Route: 065
     Dates: start: 20020723
  5. LAMICTAL [Interacting]
     Dosage: 100 MG, BID
     Route: 065
     Dates: start: 20020301, end: 20020723
  6. FLOVENT [Concomitant]
     Dosage: 2 DF, PRN
     Route: 065
     Dates: start: 20020722
  7. RANITIDINE [Concomitant]
     Route: 065
     Dates: start: 20020723
  8. FUROSEMIDE [Concomitant]
     Route: 042
     Dates: start: 20020723
  9. CIPRO [Concomitant]
     Route: 042
     Dates: start: 20020725
  10. ACETAMINOPHEN [Concomitant]
     Route: 065
     Dates: start: 20020725
  11. CLOZAPINE [Suspect]
     Indication: SCHIZOPHRENIA
     Dosage: 25 MG, BID
     Route: 048
     Dates: start: 20020722, end: 20020729
  12. CELEBREX [Concomitant]
     Dosage: 200 MG, QD
     Route: 065
     Dates: start: 20020301, end: 20020723
  13. CLOZAPINE [Suspect]
     Dosage: 100 MG, QHS
     Route: 048
     Dates: start: 20020724
  14. ALCOHOL [Concomitant]
  15. CLOZAPINE [Suspect]
     Dosage: 150 MG, QD
     Route: 048
     Dates: end: 20020729
  16. PANTOLOC ^BYK MADAUS^ [Concomitant]
     Dosage: 40 MG, QD
     Route: 065
  17. IPRATROPIUM BROMIDE [Concomitant]
     Route: 065
     Dates: start: 20020722
  18. ALBUTEROL [Concomitant]
     Route: 065
     Dates: start: 20020723

REACTIONS (12)
  - FALL [None]
  - HYPOVENTILATION [None]
  - HALLUCINATION [None]
  - THROMBOPHLEBITIS [None]
  - AGITATION [None]
  - BLOOD CREATINE PHOSPHOKINASE INCREASED [None]
  - RESPIRATORY FAILURE [None]
  - PLEURAL EFFUSION [None]
  - PNEUMONIA ASPIRATION [None]
  - SOMNOLENCE [None]
  - RESPIRATORY ACIDOSIS [None]
  - FOOT FRACTURE [None]
